FAERS Safety Report 25494181 (Version 1)
Quarter: 2025Q2

REPORT INFORMATION
  Report Type: Spontaneous
  Country: US (occurrence: US)
  Receive Date: 20250630
  Receipt Date: 20250630
  Transmission Date: 20250717
  Serious: No
  Sender: PFIZER
  Company Number: US-PFIZER INC-202500129053

PATIENT
  Age: 34 Year
  Sex: Male

DRUGS (1)
  1. NARDIL [Suspect]
     Active Substance: PHENELZINE SULFATE

REACTIONS (3)
  - Impaired work ability [Unknown]
  - Illness [Unknown]
  - Loss of personal independence in daily activities [Unknown]
